FAERS Safety Report 17060910 (Version 2)
Quarter: 2019Q4

REPORT INFORMATION
  Report Type: Report from Study
  Country: MX (occurrence: MX)
  Receive Date: 20191121
  Receipt Date: 20191206
  Transmission Date: 20200122
  Serious: Yes (Other)
  Sender: FDA-Public Use
  Company Number: PHHY2016MX114247

PATIENT
  Age: 32 Year
  Sex: Female

DRUGS (1)
  1. GILENYA [Suspect]
     Active Substance: FINGOLIMOD HYDROCHLORIDE
     Indication: MULTIPLE SCLEROSIS
     Dosage: UNK UNK, QD
     Route: 048
     Dates: start: 20160429

REACTIONS (8)
  - Bacterial blepharitis [Not Recovered/Not Resolved]
  - White blood cell count decreased [Unknown]
  - White blood cell count increased [Unknown]
  - Herpes simplex [Not Recovered/Not Resolved]
  - Blood cholesterol decreased [Unknown]
  - Lymphocyte count decreased [Unknown]
  - Sinus bradycardia [Recovered/Resolved]
  - Nystagmus [Unknown]

NARRATIVE: CASE EVENT DATE: 20160429
